FAERS Safety Report 9301525 (Version 1)
Quarter: 2012Q4

REPORT INFORMATION
  Report Type: Spontaneous
  Country: FR (occurrence: None)
  Receive Date: 20121121
  Receipt Date: 20121121
  Transmission Date: 20130627
  Serious: Yes (Hospitalization)
  Sender: FDA-Public Use
  Company Number: 216092

PATIENT
  Age: 2 Year
  Sex: Male
  Weight: 10 kg

DRUGS (1)
  1. INNOHEP [Suspect]
     Indication: ACCIDENTAL EXPOSURE TO PRODUCT BY CHILD
     Dosage: (, accidental administration)
     Route: 048

REACTIONS (2)
  - Abnormal behaviour [None]
  - Accidental exposure to product by child [None]
